FAERS Safety Report 5987157-6 (Version None)
Quarter: 2008Q4

REPORT INFORMATION
  Report Type: 
  Country: None (occurrence: None)
  Receive Date: 20081209
  Receipt Date: 20081128
  Transmission Date: 20090506
  Serious: Yes (Death)
  Sender: FDA-Public Use
  Company Number: PE-PFIZER INC-2008101232

PATIENT

DRUGS (1)
  1. SUTENT [Suspect]
     Dates: start: 20080730, end: 20080914

REACTIONS (1)
  - DEATH [None]
